FAERS Safety Report 6134238-2 (Version None)
Quarter: 2009Q1

REPORT INFORMATION
  Report Type: 
  Country: None (occurrence: None)
  Receive Date: 20090326
  Receipt Date: 20090317
  Transmission Date: 20090719
  Serious: Yes (Life-Threatening, Disabling)
  Sender: FDA-Public Use
  Company Number: RU-ABBOTT-09P-251-0562975-00

PATIENT
  Age: 23 Year
  Sex: Female

DRUGS (3)
  1. DEPAKENE [Suspect]
     Indication: EPILEPSY
     Route: 048
     Dates: start: 19950101, end: 20080101
  2. DEPAKENE [Suspect]
     Route: 048
     Dates: start: 20080101, end: 20080701
  3. DEPAKENE [Suspect]
     Route: 048
     Dates: start: 20080701

REACTIONS (7)
  - ABDOMINAL PAIN [None]
  - ALOPECIA [None]
  - CONVULSION [None]
  - DRUG INEFFECTIVE [None]
  - NAUSEA [None]
  - PRODUCT QUALITY ISSUE [None]
  - WEIGHT INCREASED [None]
